FAERS Safety Report 6295023-4 (Version None)
Quarter: 2009Q3

REPORT INFORMATION
  Report Type: 
  Country: None (occurrence: None)
  Receive Date: 20090731
  Receipt Date: 20090731
  Transmission Date: 20100115
  Serious: Yes (Hospitalization)
  Sender: FDA-Public Use
  Company Number: None

PATIENT
  Sex: Female
  Weight: 88.5 kg

DRUGS (1)
  1. TAXOL [Suspect]
     Indication: BREAST CANCER
     Dosage: 345 MG ONCE IV
     Route: 042
     Dates: start: 20090723, end: 20090723

REACTIONS (5)
  - ABDOMINAL PAIN [None]
  - BACK PAIN [None]
  - FLUSHING [None]
  - NAUSEA [None]
  - VOMITING [None]
